FAERS Safety Report 13910793 (Version 1)
Quarter: 2017Q3

REPORT INFORMATION
  Report Type: Spontaneous
  Country: US (occurrence: None)
  Receive Date: 20170825
  Receipt Date: 20170825
  Transmission Date: 20171127
  Serious: Yes (Hospitalization)
  Sender: FDA-Public Use
  Company Number: None

PATIENT
  Age: 51 Year
  Sex: Male
  Weight: 83.2 kg

DRUGS (17)
  1. ACETAMINOPHEN. [Concomitant]
     Active Substance: ACETAMINOPHEN
  2. CHOLECALCIFEROL [Concomitant]
     Active Substance: CHOLECALCIFEROL
  3. LEVOTHYROXINE. [Concomitant]
     Active Substance: LEVOTHYROXINE
  4. NORTRIPTYLINE [Concomitant]
     Active Substance: NORTRIPTYLINE
  5. RIFAXIMIN [Concomitant]
     Active Substance: RIFAXIMIN
  6. EPCLUSA [Suspect]
     Active Substance: SOFOSBUVIR\VELPATASVIR
     Indication: HEPATITIS C
     Dosage: 400-100MG QD ORAL
     Route: 048
     Dates: start: 20170208, end: 20170725
  7. GABAPENTIN. [Concomitant]
     Active Substance: GABAPENTIN
  8. MULTIPLE VITAMIN [Concomitant]
     Active Substance: VITAMINS
  9. CYANOCOBALAMIN. [Concomitant]
     Active Substance: CYANOCOBALAMIN
  10. OMEPRAZOLE. [Concomitant]
     Active Substance: OMEPRAZOLE
  11. RANITIDINE. [Concomitant]
     Active Substance: RANITIDINE
  12. LACTULOSE. [Concomitant]
     Active Substance: LACTULOSE
  13. MILK THISTLE [Concomitant]
     Active Substance: MILK THISTLE
  14. RIBAVIRIN 200MG [Suspect]
     Active Substance: RIBAVIRIN
     Route: 048
  15. CIPROFLOXACIN. [Concomitant]
     Active Substance: CIPROFLOXACIN
  16. SPIRONOLACTONE. [Concomitant]
     Active Substance: SPIRONOLACTONE
  17. NADOLOL. [Concomitant]
     Active Substance: NADOLOL

REACTIONS (4)
  - Vomiting [None]
  - Hepatic encephalopathy [None]
  - Hepatic failure [None]
  - Hepatic cirrhosis [None]

NARRATIVE: CASE EVENT DATE: 20170316
